FAERS Safety Report 11672564 (Version 1)
Quarter: 2015Q4

REPORT INFORMATION
  Report Type: Report from Study
  Country: DE (occurrence: DE)
  Receive Date: 20151028
  Receipt Date: 20151028
  Transmission Date: 20160304
  Serious: Yes (Other)
  Sender: FDA-Public Use
  Company Number: PHHY2015DE136351

PATIENT
  Sex: Female

DRUGS (1)
  1. EXTAVIA [Suspect]
     Active Substance: INTERFERON BETA-1B
     Indication: PRODUCT USED FOR UNKNOWN INDICATION
     Route: 065

REACTIONS (14)
  - Multiple sclerosis relapse [Unknown]
  - Fatigue [Unknown]
  - Gastrointestinal disorder [Unknown]
  - Injection site reaction [Unknown]
  - Central nervous system lesion [Unknown]
  - Urinary incontinence [Unknown]
  - Pain [Unknown]
  - Balance disorder [Unknown]
  - Gait disturbance [Unknown]
  - Visual impairment [Unknown]
  - Drug intolerance [Unknown]
  - Influenza like illness [Unknown]
  - Nervous system disorder [Unknown]
  - Cognitive disorder [Unknown]
